FAERS Safety Report 24990407 (Version 11)
Quarter: 2025Q3

REPORT INFORMATION
  Report Type: Spontaneous
  Country: EU (occurrence: EU)
  Receive Date: 20250220
  Receipt Date: 20250701
  Transmission Date: 20251020
  Serious: Yes (Other)
  Sender: Kenvue
  Company Number: None

PATIENT

DRUGS (9)
  1. BUDESONIDE [Suspect]
     Active Substance: BUDESONIDE
     Indication: Cystic fibrosis
     Route: 064
     Dates: start: 20240415, end: 20250109
  2. ELEXACAFTOR\IVACAFTOR\TEZACAFTOR [Suspect]
     Active Substance: ELEXACAFTOR\IVACAFTOR\TEZACAFTOR
     Indication: Cystic fibrosis
     Dosage: 2 DF, QD, (100 MG/50 MG/75 MG, FILM COATED TABLET))
     Route: 064
     Dates: start: 20240415, end: 20250109
  3. KALYDECO [Suspect]
     Active Substance: IVACAFTOR
     Indication: Cystic fibrosis
     Dosage: 150 MG, QD
     Route: 064
     Dates: start: 20240415, end: 20250109
  4. PANCRELIPASE [Suspect]
     Active Substance: PANCRELIPASE
     Indication: Cystic fibrosis
     Dosage: 12 DF, QD (25,000 U, GASTRO-RESISTANT CAPSULE)
     Route: 064
     Dates: start: 20240415, end: 20250109
  5. DESLORATADINE [Suspect]
     Active Substance: DESLORATADINE
     Indication: Product used for unknown indication
     Dosage: 1 DF, QD
     Route: 064
     Dates: start: 20240415, end: 20250109
  6. TRIAMCINOLONE [Suspect]
     Active Substance: TRIAMCINOLONE
     Indication: Cystic fibrosis
     Dosage: 2 DF, QD
     Route: 064
     Dates: start: 20240415, end: 20250109
  7. FORMOTEROL FUMARATE DIHYDRATE [Suspect]
     Active Substance: FORMOTEROL FUMARATE DIHYDRATE
     Indication: Cystic fibrosis
     Route: 064
     Dates: start: 20240415, end: 20250109
  8. CHOLECALCIFEROL [Suspect]
     Active Substance: CHOLECALCIFEROL
     Indication: Vitamin supplementation
     Dosage: 2 DF, QMO
     Route: 064
     Dates: start: 20240415, end: 20250109
  9. ESOMEPRAZOLE [Suspect]
     Active Substance: ESOMEPRAZOLE
     Indication: Cystic fibrosis
     Dosage: 20 MG, QD (TABLET)
     Route: 064
     Dates: start: 20240415, end: 20250109

REACTIONS (2)
  - Pericardial effusion [Recovered/Resolved]
  - Maternal exposure during pregnancy [Recovered/Resolved]

NARRATIVE: CASE EVENT DATE: 20240415
